FAERS Safety Report 5402763-5 (Version None)
Quarter: 2007Q3

REPORT INFORMATION
  Report Type: 
  Country: None (occurrence: None)
  Receive Date: 20070727
  Receipt Date: 20070717
  Transmission Date: 20080115
  Serious: Yes (Hospitalization)
  Sender: FDA-Public Use
  Company Number: STI-2007-01046

PATIENT
  Age: 34 Year
  Sex: Female

DRUGS (1)
  1. DUAC [Suspect]
     Indication: ACNE
     Dosage: AT NIGHT
     Route: 061
     Dates: start: 20070601, end: 20070601

REACTIONS (2)
  - CONDITION AGGRAVATED [None]
  - HYPERSENSITIVITY [None]
